FAERS Safety Report 16643309 (Version 1)
Quarter: 2019Q3

REPORT INFORMATION
  Report Type: Spontaneous
  Country: US (occurrence: US)
  Receive Date: 20190729
  Receipt Date: 20190729
  Transmission Date: 20191004
  Serious: Yes (Other)
  Sender: FDA-Public Use
  Company Number: US-JNJFOC-20190722582

PATIENT
  Sex: Male
  Weight: 116.22 kg

DRUGS (1)
  1. RISPERDAL [Suspect]
     Active Substance: RISPERIDONE
     Indication: ANXIETY
     Route: 048
     Dates: start: 201501, end: 201605

REACTIONS (5)
  - Glucose tolerance impaired [Unknown]
  - Weight increased [Unknown]
  - Gynaecomastia [Unknown]
  - Confusional state [Unknown]
  - Libido decreased [Unknown]
